FAERS Safety Report 5062745-2 (Version None)
Quarter: 2006Q3

REPORT INFORMATION
  Report Type: 
  Country: None (occurrence: None)
  Receive Date: 20060724
  Receipt Date: 20060718
  Transmission Date: 20061208
  Serious: Yes (Disabling)
  Sender: FDA-Public Use
  Company Number: 2006JP002218

PATIENT
  Age: 76 Year
  Sex: Male

DRUGS (5)
  1. VESICARE [Suspect]
     Dosage: 5 MG, UID/QD, ORAL
     Route: 048
  2. AMARYL [Concomitant]
  3. VOGLIBOSE (VOGLIBOSE) [Concomitant]
  4. SINGULAIR [Concomitant]
  5. HACHIMIGAN (HERBAL EXTRACT NOS) [Concomitant]

REACTIONS (3)
  - BLOOD PRESSURE INCREASED [None]
  - BRADYCARDIA [None]
  - WEIGHT INCREASED [None]
